FAERS Safety Report 19816245 (Version 5)
Quarter: 2021Q4

REPORT INFORMATION
  Report Type: Spontaneous
  Country: GB (occurrence: GB)
  Receive Date: 20210909
  Receipt Date: 20211008
  Transmission Date: 20220303
  Serious: Yes (Hospitalization, Other)
  Sender: FDA-Public Use
  Company Number: None

PATIENT
  Age: 7 Year
  Sex: Male

DRUGS (34)
  1. DAPTOMYCIN [Suspect]
     Active Substance: DAPTOMYCIN
     Indication: Device related infection
     Dosage: UNK
     Route: 042
  2. DAPTOMYCIN [Suspect]
     Active Substance: DAPTOMYCIN
     Indication: Bacteraemia
     Dosage: UNK
     Route: 042
  3. DAPTOMYCIN [Suspect]
     Active Substance: DAPTOMYCIN
     Dosage: UNK
     Route: 065
  4. UNSPECIFIED INGREDIENT [Suspect]
     Active Substance: UNSPECIFIED INGREDIENT
     Indication: Product used for unknown indication
     Dosage: 10 MG, QD
     Route: 065
  5. UNSPECIFIED INGREDIENT [Suspect]
     Active Substance: UNSPECIFIED INGREDIENT
     Indication: Product used for unknown indication
     Dosage: 1 DF, QD
     Route: 065
  6. UNSPECIFIED INGREDIENT [Suspect]
     Active Substance: UNSPECIFIED INGREDIENT
     Dosage: 10 MILLIGRAM, ONCE A DAY
     Route: 065
  7. UNSPECIFIED INGREDIENT [Suspect]
     Active Substance: UNSPECIFIED INGREDIENT
     Dosage: 10 MILLIGRAM, STRENGTH: 10 MG
     Route: 065
  8. UNSPECIFIED INGREDIENT [Suspect]
     Active Substance: UNSPECIFIED INGREDIENT
     Dosage: ALFUNZOSIN 10 MG UNKNOWN,ADDITIONAL INFO: DRUG TAKEN BEYOND EXPIRY DATE, MEDICATION ERROR, MISUSE
     Route: 065
  9. UNSPECIFIED INGREDIENT [Suspect]
     Active Substance: UNSPECIFIED INGREDIENT
     Dosage: STRENGTH: 10 MG;,ADDITIONAL INFO: DRUG TAKEN BEYOND EXPIRY DATE, MEDICATION ERROR, MISUSE
  10. UNSPECIFIED INGREDIENT [Suspect]
     Active Substance: UNSPECIFIED INGREDIENT
     Indication: Product used for unknown indication
     Dosage: 2.5 MG, QD
     Route: 065
  11. UNSPECIFIED INGREDIENT [Suspect]
     Active Substance: UNSPECIFIED INGREDIENT
     Dosage: 2.5 MILLIGRAM, ONCE A DAY
     Route: 065
  12. UNSPECIFIED INGREDIENT [Suspect]
     Active Substance: UNSPECIFIED INGREDIENT
     Dosage: 2.5 MILLIGRAM, STRENGTH: 2.5 MG,DRUG TAKEN BEYOND EXPIRY DATE, MEDICATION ERROR, MISUSE, OFF LABEL U
     Route: 065
  13. UNSPECIFIED INGREDIENT [Suspect]
     Active Substance: UNSPECIFIED INGREDIENT
     Indication: Product used for unknown indication
     Dosage: 500 UG, QD
     Route: 065
  14. UNSPECIFIED INGREDIENT [Suspect]
     Active Substance: UNSPECIFIED INGREDIENT
     Dosage: 500 MICROGRAM, ONCE A DAY
     Route: 065
  15. UNSPECIFIED INGREDIENT [Suspect]
     Active Substance: UNSPECIFIED INGREDIENT
     Dosage: 500 MICROGRAM, STRENGTH: 500 MCG, DRUG TAKEN BEYOND EXPIRY DATE, MEDICATION ERROR, MISUSE, OFF LABEL
     Route: 065
  16. UNSPECIFIED INGREDIENT [Suspect]
     Active Substance: UNSPECIFIED INGREDIENT
     Indication: Product used for unknown indication
     Dosage: 15 MG, QD
     Route: 065
  17. UNSPECIFIED INGREDIENT [Suspect]
     Active Substance: UNSPECIFIED INGREDIENT
     Dosage: 15 MILLIGRAM
     Route: 065
  18. UNSPECIFIED INGREDIENT [Suspect]
     Active Substance: UNSPECIFIED INGREDIENT
     Dosage: 2.5 MILLIGRAM
     Route: 065
  19. UNSPECIFIED INGREDIENT [Suspect]
     Active Substance: UNSPECIFIED INGREDIENT
     Dosage: ,ADDITIONAL INFO: DRUG TAKEN BEYOND EXPIRY DATE, MEDICATION ERROR, MISUSEUNK, STRENGTH: 2.5 MG
  20. UNSPECIFIED INGREDIENT [Suspect]
     Active Substance: UNSPECIFIED INGREDIENT
     Dosage: 15 MILLIGRAM QD, STRENGTH: 15 MG,ADDITIONAL INFO: DRUG TAKEN BEYOND EXPIRY DATE, MEDICATION ERROR, M
     Route: 065
  21. UNSPECIFIED INGREDIENT [Suspect]
     Active Substance: UNSPECIFIED INGREDIENT
     Indication: Product used for unknown indication
     Dosage: UNK
     Route: 065
  22. UNSPECIFIED INGREDIENT [Suspect]
     Active Substance: UNSPECIFIED INGREDIENT
     Dosage: 50 MG, QD
     Route: 065
  23. UNSPECIFIED INGREDIENT [Suspect]
     Active Substance: UNSPECIFIED INGREDIENT
     Dosage: 100 MG, QD
     Route: 065
  24. UNSPECIFIED INGREDIENT [Suspect]
     Active Substance: UNSPECIFIED INGREDIENT
     Dosage: 100 MG, QD
     Route: 065
  25. UNSPECIFIED INGREDIENT [Suspect]
     Active Substance: UNSPECIFIED INGREDIENT
     Dosage: UNK, ONCE A DAY,ADDITIONAL INFO: MEDICATION ERROR
     Route: 065
  26. UNSPECIFIED INGREDIENT [Suspect]
     Active Substance: UNSPECIFIED INGREDIENT
     Dosage: 50 MG, STRENGTH: 100 MG
     Route: 065
  27. UNSPECIFIED INGREDIENT [Suspect]
     Active Substance: UNSPECIFIED INGREDIENT
     Dosage: 100 MILLIGRAM, ONCE A DAY
     Route: 065
  28. UNSPECIFIED INGREDIENT [Suspect]
     Active Substance: UNSPECIFIED INGREDIENT
     Dosage: 50 MILLIGRAM, STRENGTH : 50 MG,DRUG TAKEN BEYOND EXPIRY DATE, MEDICATION ERROR, MISUSE
     Route: 065
  29. UNSPECIFIED INGREDIENT [Suspect]
     Active Substance: UNSPECIFIED INGREDIENT
     Dosage: 100 MILLIGRAM, MEDICATION ERROR
  30. UNSPECIFIED INGREDIENT [Suspect]
     Active Substance: UNSPECIFIED INGREDIENT
     Dosage: ,DRUG TAKEN BEYOND EXPIRY DATE, MEDICATION ERROR, MISUSEUNK, STRENGTH: 100 MG
     Route: 065
  31. UNSPECIFIED INGREDIENT [Suspect]
     Active Substance: UNSPECIFIED INGREDIENT
     Indication: Bacteraemia
     Dosage: UNK
     Route: 065
  32. UNSPECIFIED INGREDIENT [Suspect]
     Active Substance: UNSPECIFIED INGREDIENT
     Indication: Device related infection
     Dosage: UNK
  33. UNSPECIFIED INGREDIENT [Suspect]
     Active Substance: UNSPECIFIED INGREDIENT
     Indication: Product used for unknown indication
     Dosage: UNK
     Route: 042
  34. UNSPECIFIED INGREDIENT [Suspect]
     Active Substance: UNSPECIFIED INGREDIENT
     Dosage: OFF LABEL USE
     Route: 065

REACTIONS (14)
  - Product storage error [Unknown]
  - Wrong product administered [Unknown]
  - Wrong patient received product [Unknown]
  - Therapy non-responder [Unknown]
  - Product dispensing error [Unknown]
  - Malaise [Unknown]
  - Drug dispensed to wrong patient [Unknown]
  - Drug ineffective for unapproved indication [Unknown]
  - Antimicrobial susceptibility test resistant [Unknown]
  - Lower respiratory tract infection [Unknown]
  - Product administration error [Unknown]
  - Therapeutic response delayed [Unknown]
  - Off label use [Unknown]
  - Expired product administered [Unknown]
